FAERS Safety Report 10160699 (Version 1)
Quarter: 2014Q2

REPORT INFORMATION
  Report Type: Spontaneous
  Country: US (occurrence: None)
  Receive Date: 20140507
  Receipt Date: 20140507
  Transmission Date: 20141212
  Serious: Yes (Disabling, Other)
  Sender: FDA-Public Use
  Company Number: None

PATIENT
  Age: 87 Year
  Sex: Male
  Weight: 74.84 kg

DRUGS (10)
  1. SIMVASTATIN [Suspect]
     Indication: BLOOD CHOLESTEROL
     Dosage: 1 TABLET /DAY
     Route: 048
     Dates: start: 2008, end: 20140330
  2. TRAVATAN Z [Concomitant]
  3. JANUVIA [Concomitant]
  4. NOVA CRUISER [Concomitant]
  5. MASTER WONG MOUM FUS OIL [Concomitant]
  6. ICY HOT CREAM [Concomitant]
  7. SALON PAS PATCHES [Concomitant]
  8. ASPERCREME [Concomitant]
  9. META-MUCIL ORANGE FLAVOR [Concomitant]
  10. ADVIL LIQUI-GELS [Concomitant]

REACTIONS (4)
  - Gait disturbance [None]
  - Muscle spasms [None]
  - Arthralgia [None]
  - Muscle disorder [None]
